FAERS Safety Report 5761183-4 (Version None)
Quarter: 2008Q2

REPORT INFORMATION
  Report Type: 
  Country: None (occurrence: None)
  Receive Date: 20080606
  Receipt Date: 20080529
  Transmission Date: 20081010
  Serious: Yes (Hospitalization)
  Sender: FDA-Public Use
  Company Number: B0523278A

PATIENT
  Age: 43 Year
  Sex: Male

DRUGS (5)
  1. COMBIVIR [Suspect]
     Indication: HIV INFECTION
     Route: 048
     Dates: start: 20070914, end: 20071031
  2. CRIXIVAN [Concomitant]
     Indication: HIV INFECTION
     Route: 065
     Dates: start: 20070914, end: 20071031
  3. VIREAD [Concomitant]
     Indication: HIV INFECTION
     Route: 065
     Dates: start: 20070914, end: 20071031
  4. KALETRA [Concomitant]
     Indication: HIV INFECTION
     Route: 065
     Dates: start: 20070914
  5. BIPROFENID [Concomitant]
     Indication: DRUG USE FOR UNKNOWN INDICATION
     Route: 065

REACTIONS (4)
  - BLOOD IRON INCREASED [None]
  - PANCYTOPENIA [None]
  - PROGRESSIVE MULTIFOCAL LEUKOENCEPHALOPATHY [None]
  - RENAL FAILURE ACUTE [None]
